FAERS Safety Report 24401542 (Version 2)
Quarter: 2025Q4

REPORT INFORMATION
  Report Type: Report from Study
  Country: JP (occurrence: JP)
  Receive Date: 20241007
  Receipt Date: 20251008
  Transmission Date: 20260117
  Serious: Yes (Other)
  Sender: AMGEN
  Company Number: JP-Vifor (International) Inc.-VIT-2024-09083

PATIENT
  Age: 72 Year
  Sex: Female
  Weight: 40 kg

DRUGS (5)
  1. AVACOPAN [Suspect]
     Active Substance: AVACOPAN
     Indication: Microscopic polyangiitis
     Dosage: 20,MG,BID
     Route: 048
     Dates: start: 20230825, end: 20231215
  2. PREDNISOLONE [Concomitant]
     Active Substance: PREDNISOLONE
     Indication: Microscopic polyangiitis
     Dosage: 7,MG,QD
     Route: 048
     Dates: start: 20230825, end: 20231026
  3. PREDNISOLONE [Concomitant]
     Active Substance: PREDNISOLONE
     Dosage: 6 MG, QD
     Route: 048
     Dates: start: 20231027, end: 20231215
  4. RITUXIMAB [Concomitant]
     Active Substance: RITUXIMAB
     Indication: Microscopic polyangiitis
     Dosage: UNK
     Route: 040
  5. RITUXIMAB [Concomitant]
     Active Substance: RITUXIMAB
     Dosage: 500 MILLIGRAM
     Route: 040
     Dates: start: 20230905, end: 20230905

REACTIONS (2)
  - Abulia [Recovered/Resolved]
  - Underdose [Unknown]

NARRATIVE: CASE EVENT DATE: 20230825
